FAERS Safety Report 15851987 (Version 1)
Quarter: 2018Q4

REPORT INFORMATION
  Report Type: Spontaneous
  Country: US (occurrence: US)
  Receive Date: 20181224
  Receipt Date: 20181224
  Transmission Date: 20190205
  Serious: Yes (Death)
  Sender: FDA-Public Use
  Company Number: None

PATIENT
  Age: 62 Year
  Sex: Male

DRUGS (5)
  1. ESBRIET [Suspect]
     Active Substance: PIRFENIDONE
     Indication: IDIOPATHIC PULMONARY FIBROSIS
     Route: 048
     Dates: start: 20181129, end: 201812
  2. LOSARTAN. [Concomitant]
     Active Substance: LOSARTAN
  3. BENZONATATE. [Concomitant]
     Active Substance: BENZONATATE
  4. ATORVASTATIN [Concomitant]
     Active Substance: ATORVASTATIN
  5. PROMETHCOD [Concomitant]

REACTIONS (1)
  - Death [None]

NARRATIVE: CASE EVENT DATE: 20181221
